FAERS Safety Report 8469442-1 (Version None)
Quarter: 2012Q2

REPORT INFORMATION
  Report Type: 
  Country: None (occurrence: None)
  Receive Date: 20120621
  Receipt Date: 20120621
  Transmission Date: 20120825
  Serious: Yes (Hospitalization)
  Sender: FDA-Public Use
  Company Number: None

PATIENT
  Age: 34 Year
  Sex: Female
  Weight: 64.4108 kg

DRUGS (2)
  1. LAMICTAL [Suspect]
     Indication: MENTAL STATUS CHANGES
     Dosage: 150 MG 1 TB TWICE A DAY
     Dates: start: 20120418
  2. LAMICTAL [Suspect]
     Indication: MENTAL STATUS CHANGES
     Dosage: 150 MG 1 TB TWICE A DAY
     Dates: start: 20120416

REACTIONS (3)
  - AMNESIA [None]
  - DIZZINESS [None]
  - ABASIA [None]
